FAERS Safety Report 23729701 (Version 1)
Quarter: 2024Q2

REPORT INFORMATION
  Report Type: Spontaneous
  Country: US (occurrence: US)
  Receive Date: 20240411
  Receipt Date: 20240411
  Transmission Date: 20240716
  Serious: No
  Sender: FDA-Public Use
  Company Number: US-ABBVIE-5709800

PATIENT
  Sex: Female

DRUGS (1)
  1. RINVOQ [Suspect]
     Active Substance: UPADACITINIB
     Indication: Rheumatoid arthritis
     Route: 048

REACTIONS (5)
  - Nodule [Recovered/Resolved]
  - Arthralgia [Unknown]
  - Influenza like illness [Recovered/Resolved]
  - Gastrointestinal disorder [Recovered/Resolved]
  - Unevaluable event [Recovered/Resolved]
